FAERS Safety Report 8027711-3 (Version None)
Quarter: 2012Q1

REPORT INFORMATION
  Report Type: 
  Country: None (occurrence: None)
  Receive Date: 20120106
  Receipt Date: 20120103
  Transmission Date: 20120608
  Serious: Yes (Other)
  Sender: FDA-Public Use
  Company Number: US-BAYER-2012-000898

PATIENT
  Age: 36 Year
  Sex: Female

DRUGS (1)
  1. MIRENA [Suspect]
     Indication: CONTRACEPTION
     Dosage: 20 MCG/24HR, CONT
     Route: 015
     Dates: start: 20100801

REACTIONS (14)
  - INFECTION [None]
  - BREAST DISCHARGE [None]
  - HYPOMENORRHOEA [None]
  - BREAST ENGORGEMENT [None]
  - HEADACHE [None]
  - NAUSEA [None]
  - AMENORRHOEA [None]
  - MENSTRUAL DISORDER [None]
  - ABDOMINAL DISTENSION [None]
  - DIZZINESS [None]
  - VOMITING [None]
  - FEELING ABNORMAL [None]
  - ACNE [None]
  - TOOTH DISORDER [None]
